FAERS Safety Report 7293428-6 (Version None)
Quarter: 2011Q1

REPORT INFORMATION
  Report Type: 
  Country: None (occurrence: None)
  Receive Date: 20110215
  Receipt Date: 20110204
  Transmission Date: 20110831
  Serious: Yes (Other)
  Sender: FDA-Public Use
  Company Number: BR-ELI_LILLY_AND_COMPANY-BR201101006533

PATIENT
  Sex: Female
  Weight: 55 kg

DRUGS (4)
  1. PURAN T4 [Concomitant]
     Indication: THYROID DISORDER
     Dosage: 50 MG, EACH MORNING
     Route: 048
     Dates: start: 20100701
  2. HUMULIN N [Concomitant]
     Dosage: UNK, UNKNOWN
     Route: 065
  3. HUMULIN R [Suspect]
     Indication: TYPE 1 DIABETES MELLITUS
     Dosage: UNK, UNKNOWN
     Route: 065
     Dates: start: 19950101
  4. HUMULIN R [Suspect]
     Dosage: UNK, UNKNOWN
     Route: 065

REACTIONS (5)
  - SYNCOPE [None]
  - DRUG INEFFECTIVE [None]
  - VISUAL IMPAIRMENT [None]
  - INCORRECT STORAGE OF DRUG [None]
  - BLOOD GLUCOSE INCREASED [None]
